FAERS Safety Report 13055547 (Version 1)
Quarter: 2016Q4

REPORT INFORMATION
  Report Type: Spontaneous
  Country: JP (occurrence: JP)
  Receive Date: 20161222
  Receipt Date: 20161222
  Transmission Date: 20170207
  Serious: Yes (Disabling)
  Sender: FDA-Public Use
  Company Number: JP-GUERBET LLC-1061189

PATIENT
  Age: 80 Year
  Sex: Female

DRUGS (3)
  1. OPTIRAY [Suspect]
     Active Substance: IOVERSOL
     Indication: TRANSCATHETER ARTERIAL CHEMOEMBOLISATION
     Route: 013
     Dates: start: 20161004, end: 20161004
  2. CISPLATIN. [Suspect]
     Active Substance: CISPLATIN
  3. DOXORUBICIN HYDROCHLORIDE. [Concomitant]
     Active Substance: DOXORUBICIN HYDROCHLORIDE

REACTIONS (1)
  - Acute kidney injury [Recovering/Resolving]

NARRATIVE: CASE EVENT DATE: 20161005
